FAERS Safety Report 6898901-8 (Version None)
Quarter: 2010Q3

REPORT INFORMATION
  Report Type: 
  Country: None (occurrence: None)
  Receive Date: 20100802
  Receipt Date: 20071203
  Transmission Date: 20110219
  Serious: No
  Sender: FDA-Public Use
  Company Number: US-PFIZER INC-2007102326

PATIENT
  Sex: Female
  Weight: 72.727 kg

DRUGS (3)
  1. LYRICA [Suspect]
     Indication: BACK PAIN
     Dates: start: 20070101
  2. MORPHINE [Concomitant]
  3. DILAUDID [Concomitant]

REACTIONS (2)
  - BALANCE DISORDER [None]
  - NEURALGIA [None]
